FAERS Safety Report 21279932 (Version 1)
Quarter: 2022Q3

REPORT INFORMATION
  Report Type: Spontaneous
  Country: US (occurrence: None)
  Receive Date: 20220831
  Receipt Date: 20220831
  Transmission Date: 20221026
  Serious: Yes (Disabling)
  Sender: FDA-Public Use
  Company Number: None

PATIENT
  Age: 47 Year
  Sex: Female
  Weight: 68.85 kg

DRUGS (1)
  1. RISPERDAL CONSTA [Suspect]
     Active Substance: RISPERIDONE

REACTIONS (10)
  - Memory impairment [None]
  - Weight increased [None]
  - Vision blurred [None]
  - Confusional state [None]
  - Dermatillomania [None]
  - Skin disorder [None]
  - Mass [None]
  - Malaise [None]
  - Nausea [None]
  - Foot deformity [None]
